FAERS Safety Report 8115730-8 (Version None)
Quarter: 2012Q1

REPORT INFORMATION
  Report Type: 
  Country: None (occurrence: None)
  Receive Date: 20120201
  Receipt Date: 20120123
  Transmission Date: 20120608
  Serious: Yes (Hospitalization)
  Sender: FDA-Public Use
  Company Number: GER/GER/11/0022274

PATIENT
  Age: 77 Year
  Sex: Female
  Weight: 82 kg

DRUGS (1)
  1. ENALAPRIL MALEATE AND HYDROCHLOROTHIAZIDE [Suspect]
     Indication: HYPERTENSION
     Dosage: 35 MG, 1 IN 1 D, ORAL
     Route: 048
     Dates: start: 20111128, end: 20111128

REACTIONS (3)
  - ABDOMINAL PAIN UPPER [None]
  - HEADACHE [None]
  - HYPERTENSION [None]
